FAERS Safety Report 6630236-0 (Version None)
Quarter: 2010Q1

REPORT INFORMATION
  Report Type: 
  Country: None (occurrence: None)
  Receive Date: 20100311
  Receipt Date: 20100308
  Transmission Date: 20100710
  Serious: Yes (Hospitalization)
  Sender: FDA-Public Use
  Company Number: A0849545A

PATIENT
  Age: 57 Year
  Sex: Male
  Weight: 106.8 kg

DRUGS (2)
  1. AVANDAMET [Suspect]
     Route: 048
     Dates: end: 20070401
  2. AVANDIA [Suspect]
     Dosage: 4MG PER DAY
     Route: 048
     Dates: end: 20070701

REACTIONS (1)
  - MYOCARDIAL INFARCTION [None]
